FAERS Safety Report 5402077-3 (Version None)
Quarter: 2007Q3

REPORT INFORMATION
  Report Type: 
  Country: None (occurrence: None)
  Receive Date: 20070726
  Receipt Date: 20070625
  Transmission Date: 20080115
  Serious: Yes (Other)
  Sender: FDA-Public Use
  Company Number: CHPA2007US07179

PATIENT
  Age: 62 Year
  Sex: Male

DRUGS (9)
  1. NICOTINE [Suspect]
     Indication: SMOKING CESSATION THERAPY
     Dosage: QD, TRANSDERMAL
     Route: 062
     Dates: start: 20070617
  2. NICOTINE [Suspect]
     Indication: SMOKING CESSATION THERAPY
     Dosage: TRANSDERMAL
     Route: 062
  3. CELLCEPT [Concomitant]
  4. PROGRAF [Concomitant]
  5. AMBIEN [Concomitant]
  6. PLAVIX [Concomitant]
  7. AVANDIA [Concomitant]
  8. PREDNISONE TAB [Concomitant]
  9. INSULIN (INSULIN) [Concomitant]

REACTIONS (6)
  - AGGRESSION [None]
  - DISORIENTATION [None]
  - HALLUCINATION [None]
  - INSOMNIA [None]
  - PSYCHOTIC DISORDER [None]
  - SCREAMING [None]
